FAERS Safety Report 12283759 (Version 1)
Quarter: 2016Q2

REPORT INFORMATION
  Report Type: Spontaneous
  Country: US (occurrence: US)
  Receive Date: 20160419
  Receipt Date: 20160419
  Transmission Date: 20160815
  Serious: No
  Sender: FDA-Public Use
  Company Number: US-BANPHARM-20154119

PATIENT
  Age: 71 Year
  Sex: Female
  Weight: 50.8 kg

DRUGS (4)
  1. ALEVE [Suspect]
     Active Substance: NAPROXEN SODIUM
     Dosage: 1 DF, Q12H,
     Route: 048
     Dates: start: 20150802, end: 20150804
  2. THRYOID SUPPLEMENT [Concomitant]
     Indication: INFLAMMATION
  3. VITAMIN D DROPS [Concomitant]
  4. STORE BRAND CALCIUM SUPPLEMENT [Concomitant]

REACTIONS (1)
  - Headache [Recovered/Resolved]
